FAERS Safety Report 26028894 (Version 2)
Quarter: 2025Q4

REPORT INFORMATION
  Report Type: Report from Study
  Country: US (occurrence: US)
  Receive Date: 20251112
  Receipt Date: 20251117
  Transmission Date: 20260117
  Serious: No
  Sender: BAUSCH AND LOMB
  Company Number: US-BAUSCH-BH-2025-020006

PATIENT
  Age: 65 Year
  Sex: Male

DRUGS (3)
  1. RETIN-A MICRO [Suspect]
     Active Substance: TRETINOIN
     Indication: Pigmentation disorder
     Route: 061
  2. RETIN-A MICRO [Suspect]
     Active Substance: TRETINOIN
     Indication: Skin discolouration
  3. RETIN-A MICRO [Suspect]
     Active Substance: TRETINOIN
     Indication: Product use in unapproved indication

REACTIONS (5)
  - Therapy interrupted [Unknown]
  - Product dose omission issue [Unknown]
  - Product prescribing issue [Unknown]
  - Product use in unapproved indication [Unknown]
  - No adverse event [Unknown]

NARRATIVE: CASE EVENT DATE: 20250601
